FAERS Safety Report 10449169 (Version 2)
Quarter: 2014Q4

REPORT INFORMATION
  Report Type: Spontaneous
  Country: IT (occurrence: IT)
  Receive Date: 20140912
  Receipt Date: 20141126
  Transmission Date: 20150528
  Serious: Yes (Hospitalization)
  Sender: FDA-Public Use
  Company Number: IT-BRISTOL-MYERS SQUIBB COMPANY-21358205

PATIENT
  Age: 72 Year
  Sex: Male
  Weight: 65 kg

DRUGS (11)
  1. AMIODARONE [Concomitant]
     Active Substance: AMIODARONE
  2. EUTIROX [Concomitant]
     Active Substance: LEVOTHYROXINE SODIUM
  3. COUMADIN [Suspect]
     Active Substance: WARFARIN SODIUM
     Indication: PROPHYLAXIS
     Dosage: 1DF=1 UNIT
     Route: 048
     Dates: start: 20100803, end: 20140731
  4. BLOPRESS [Concomitant]
     Active Substance: CANDESARTAN CILEXETIL
  5. GLUCOPHAGE [Concomitant]
     Active Substance: METFORMIN HYDROCHLORIDE
  6. DOMPERIDONE [Concomitant]
     Active Substance: DOMPERIDONE
  7. SOLOSA [Concomitant]
     Active Substance: GLIMEPIRIDE
  8. URSODEOXYCHOLIC ACID [Concomitant]
     Active Substance: URSODIOL
  9. VOLTAREN [Suspect]
     Active Substance: DICLOFENAC SODIUM
     Indication: BACK PAIN
     Route: 048
     Dates: start: 20140728, end: 20140730
  10. ISOSORBIDE MONONITRATE. [Concomitant]
     Active Substance: ISOSORBIDE MONONITRATE
  11. ANTRA [Concomitant]
     Active Substance: OMEPRAZOLE

REACTIONS (3)
  - International normalised ratio increased [Recovering/Resolving]
  - Iron deficiency anaemia [Recovering/Resolving]
  - Haemorrhagic erosive gastritis [Recovering/Resolving]

NARRATIVE: CASE EVENT DATE: 20140728
